FAERS Safety Report 4369396-3 (Version None)
Quarter: 2004Q2

REPORT INFORMATION
  Report Type: 
  Country: None (occurrence: None)
  Receive Date: 20040528
  Receipt Date: 20040519
  Transmission Date: 20050107
  Serious: Yes (Other)
  Sender: FDA-Public Use
  Company Number: 30019882-NA01-1

PATIENT
  Age: 52 Year
  Sex: Male
  Weight: 76.6 kg

DRUGS (1)
  1. DIANEAL 137 W/ DEXTROSE 2.5% IN PLASTIC CONTAINER [Suspect]
     Indication: PERITONEAL DIALYSIS
     Dosage: 2.5L X 4 EXCHANGES, DAILY, INTRAPERITONEAL
     Route: 033
     Dates: start: 20020101

REACTIONS (3)
  - DRY SKIN [None]
  - PRURITUS [None]
  - RASH PAPULAR [None]
